FAERS Safety Report 15182713 (Version 1)
Quarter: 2018Q3

REPORT INFORMATION
  Report Type: Spontaneous
  Country: US (occurrence: US)
  Receive Date: 20180723
  Receipt Date: 20180723
  Transmission Date: 20181010
  Serious: No
  Sender: FDA-Public Use
  Company Number: US-009507513-1512USA006478

PATIENT
  Age: 36 Year
  Sex: Female

DRUGS (5)
  1. ATAZANAVIR. [Suspect]
     Active Substance: ATAZANAVIR SULFATE
     Dosage: 300 DF, DAILY, COURSE# 1
     Route: 048
     Dates: start: 201408, end: 201502
  2. LAMIVUDINE AND ZIDOVUDINE [Suspect]
     Active Substance: LAMIVUDINE\ZIDOVUDINE
     Dosage: 900 DF, DAILY, COURSE#1
     Route: 048
     Dates: start: 201408
  3. RITONAVIR. [Suspect]
     Active Substance: RITONAVIR
     Dosage: 100 DF, DAILY, COURSE#1
     Route: 048
     Dates: start: 201408, end: 201502
  4. LOPINAVIR (+) RITONAVIR [Suspect]
     Active Substance: LOPINAVIR\RITONAVIR
     Dosage: 1000 DF, DAILY, COURSE# 1
     Route: 048
     Dates: start: 201502, end: 201502
  5. ISENTRESS [Suspect]
     Active Substance: RALTEGRAVIR POTASSIUM
     Dosage: 800 DF, DAILY, COURSE# 1
     Route: 048
     Dates: start: 201502

REACTIONS (1)
  - Maternal exposure during pregnancy [Recovered/Resolved]
